FAERS Safety Report 4624870-7 (Version None)
Quarter: 2005Q2

REPORT INFORMATION
  Report Type: 
  Country: None (occurrence: None)
  Receive Date: 20050325
  Receipt Date: 20050107
  Transmission Date: 20051028
  Serious: No
  Sender: FDA-Public Use
  Company Number: USA050187748

PATIENT
  Age: 57 Year
  Sex: Male

DRUGS (1)
  1. FORTEO [Suspect]
     Indication: OSTEOPENIA
     Dates: start: 20041201

REACTIONS (2)
  - ARTHRALGIA [None]
  - JOINT RANGE OF MOTION DECREASED [None]
